FAERS Safety Report 14158067 (Version 1)
Quarter: 2017Q4

REPORT INFORMATION
  Report Type: Spontaneous
  Country: US (occurrence: US)
  Receive Date: 20171105
  Receipt Date: 20171105
  Transmission Date: 20180321
  Serious: No
  Sender: FDA-Public Use
  Company Number: US-SHIRE-US201726781

PATIENT
  Sex: Male

DRUGS (2)
  1. LINZESS [Concomitant]
     Active Substance: LINACLOTIDE
     Indication: PRODUCT USED FOR UNKNOWN INDICATION
     Route: 047
  2. XIIDRA [Suspect]
     Active Substance: LIFITEGRAST
     Indication: EYE DISCHARGE
     Dosage: UNK
     Route: 047
     Dates: start: 20171010

REACTIONS (3)
  - Eye discharge [Recovered/Resolved]
  - Instillation site pain [Unknown]
  - Instillation site reaction [Unknown]
